FAERS Safety Report 4990432-5 (Version None)
Quarter: 2006Q2

REPORT INFORMATION
  Report Type: 
  Country: None (occurrence: None)
  Receive Date: 20060501
  Receipt Date: 20060501
  Transmission Date: 20061013
  Serious: Yes (Hospitalization)
  Sender: FDA-Public Use
  Company Number: None

PATIENT
  Age: 40 Year
  Sex: Female

DRUGS (4)
  1. ELMIRON [Suspect]
     Indication: CYSTITIS
     Dosage: PO
     Route: 048
  2. ELMIRON [Suspect]
     Indication: PAIN
     Dosage: PO
     Route: 048
  3. ATARAX [Concomitant]
  4. BIRTH CONTROL PILLS [Concomitant]

REACTIONS (3)
  - ABDOMINAL PAIN [None]
  - COLITIS [None]
  - RECTAL HAEMORRHAGE [None]
